FAERS Safety Report 18954855 (Version 1)
Quarter: 2021Q1

REPORT INFORMATION
  Report Type: Spontaneous
  Country: HU (occurrence: HU)
  Receive Date: 20210301
  Receipt Date: 20210301
  Transmission Date: 20210420
  Serious: Yes (Death, Hospitalization, Other)
  Sender: FDA-Public Use
  Company Number: HU-VISTAPHARM, INC.-VER202102-000851

PATIENT
  Age: 34 Year
  Sex: Male

DRUGS (1)
  1. HYDROCODONE AND ACETAMINOPHEN [Suspect]
     Active Substance: ACETAMINOPHEN\HYDROCODONE
     Indication: PRODUCT USED FOR UNKNOWN INDICATION
     Dosage: UNKNOWN

REACTIONS (6)
  - Altered state of consciousness [Fatal]
  - Condition aggravated [Fatal]
  - Lactic acidosis [Fatal]
  - Respiratory acidosis [Fatal]
  - Somnolence [Fatal]
  - Metabolic acidosis [Fatal]
